FAERS Safety Report 19004492 (Version 1)
Quarter: 2021Q1

REPORT INFORMATION
  Report Type: Other
  Country: US (occurrence: US)
  Receive Date: 20210312
  Receipt Date: 20210312
  Transmission Date: 20210420
  Serious: Yes (Hospitalization)
  Sender: FDA-Public Use
  Company Number: US-ROCHE-2754595

PATIENT
  Sex: Male

DRUGS (2)
  1. XELODA [Suspect]
     Active Substance: CAPECITABINE
     Indication: NEUROENDOCRINE TUMOUR
  2. XELODA [Suspect]
     Active Substance: CAPECITABINE
     Indication: NEUROENDOCRINE CARCINOMA
     Dosage: 3 TABLETS BY MOUTH EVERY MORNING AND 3 TABLETS EVERY EVENING ON DAYS 1 THROUGH 14 FOLLOWED BY 7 DAYS
     Route: 048

REACTIONS (3)
  - Tooth infection [Unknown]
  - Off label use [Unknown]
  - Intentional product use issue [Unknown]
